FAERS Safety Report 12677971 (Version 14)
Quarter: 2022Q1

REPORT INFORMATION
  Report Type: Report from Study
  Country: CO (occurrence: CO)
  Receive Date: 20160823
  Receipt Date: 20220218
  Transmission Date: 20220423
  Serious: Yes (Hospitalization, Other)
  Sender: FDA-Public Use
  Company Number: PHHY2015CO167185

PATIENT
  Age: 34 Year
  Sex: Female
  Weight: 55 kg

DRUGS (14)
  1. ELTROMBOPAG OLAMINE [Suspect]
     Active Substance: ELTROMBOPAG OLAMINE
     Indication: Immune thrombocytopenia
     Dosage: 25 MG, QD
     Route: 048
  2. ELTROMBOPAG OLAMINE [Suspect]
     Active Substance: ELTROMBOPAG OLAMINE
     Dosage: 50 MG, Q12H ((TABLET OF 25MG) EVERY 12 HOURS)
     Route: 048
  3. ELTROMBOPAG OLAMINE [Suspect]
     Active Substance: ELTROMBOPAG OLAMINE
     Dosage: 4 DF, QD
     Route: 048
     Dates: start: 2013
  4. ELTROMBOPAG OLAMINE [Suspect]
     Active Substance: ELTROMBOPAG OLAMINE
     Dosage: 100 MG, QD
     Route: 048
     Dates: start: 20140605
  5. ELTROMBOPAG OLAMINE [Suspect]
     Active Substance: ELTROMBOPAG OLAMINE
     Dosage: 4 DF, QD
     Route: 048
     Dates: start: 20150327
  6. ELTROMBOPAG OLAMINE [Suspect]
     Active Substance: ELTROMBOPAG OLAMINE
     Dosage: UNK
     Route: 048
     Dates: start: 20160831
  7. ELTROMBOPAG OLAMINE [Suspect]
     Active Substance: ELTROMBOPAG OLAMINE
     Dosage: 4 DF, QD
     Route: 048
     Dates: end: 201701
  8. ELTROMBOPAG OLAMINE [Suspect]
     Active Substance: ELTROMBOPAG OLAMINE
     Dosage: 4 DF, QD (100MG)
     Route: 048
     Dates: end: 20190128
  9. ELTROMBOPAG OLAMINE [Suspect]
     Active Substance: ELTROMBOPAG OLAMINE
     Dosage: 4 DF, QD (100MG)
     Route: 048
     Dates: start: 20190411
  10. ELTROMBOPAG OLAMINE [Suspect]
     Active Substance: ELTROMBOPAG OLAMINE
     Dosage: 50 MG, QD
     Route: 048
  11. ATORVASTATIN [Concomitant]
     Active Substance: ATORVASTATIN
     Indication: Product used for unknown indication
     Dosage: UNK
     Route: 065
  12. OMEPRAZOLE [Concomitant]
     Active Substance: OMEPRAZOLE
     Indication: Product used for unknown indication
     Route: 065
  13. MESTINON [Concomitant]
     Active Substance: PYRIDOSTIGMINE BROMIDE
     Indication: Myasthenia gravis
     Dosage: 5 DF (5 PILLS DAILY), QD
     Route: 048
  14. MESTINON [Concomitant]
     Active Substance: PYRIDOSTIGMINE BROMIDE
     Dosage: 60 MG, QID
     Route: 048

REACTIONS (29)
  - Pruritus [Unknown]
  - Vaginal haemorrhage [Unknown]
  - Headache [Unknown]
  - Platelet count decreased [Unknown]
  - Haemorrhage [Unknown]
  - Immune thrombocytopenia [Unknown]
  - Disease recurrence [Unknown]
  - Dysphonia [Unknown]
  - Amnesia [Unknown]
  - Illness [Unknown]
  - Pain [Not Recovered/Not Resolved]
  - Pallor [Unknown]
  - Limb discomfort [Unknown]
  - Gingival bleeding [Unknown]
  - Contusion [Unknown]
  - Heavy menstrual bleeding [Unknown]
  - Blood iron decreased [Unknown]
  - Serum ferritin decreased [Unknown]
  - Anaemia [Unknown]
  - Cough [Unknown]
  - Dizziness [Unknown]
  - Nausea [Unknown]
  - Dyspnoea [Unknown]
  - Rash [Unknown]
  - Asthenia [Not Recovered/Not Resolved]
  - Platelet count abnormal [Unknown]
  - Product supply issue [Unknown]
  - Incorrect dose administered [Unknown]
  - Off label use [Unknown]

NARRATIVE: CASE EVENT DATE: 20150327
